FAERS Safety Report 8279926-7 (Version None)
Quarter: 2012Q2

REPORT INFORMATION
  Report Type: 
  Country: None (occurrence: None)
  Receive Date: 20120412
  Receipt Date: 20120410
  Transmission Date: 20120825
  Serious: No
  Sender: FDA-Public Use
  Company Number: US-PFIZER INC-2012089660

PATIENT
  Sex: Female
  Weight: 63.492 kg

DRUGS (6)
  1. KLONOPIN [Suspect]
     Indication: ANXIETY
     Dosage: UNK
  2. XANAX [Suspect]
     Indication: ANXIETY
     Dosage: 1 MG, 3X/DAY
     Route: 048
     Dates: start: 19960101
  3. FIORICET [Concomitant]
     Indication: MIGRAINE
  4. XANAX [Suspect]
     Dosage: 0.25 MG, 2X/DAY
     Route: 048
  5. FIORICET [Concomitant]
     Indication: HEADACHE
     Dosage: UNK
  6. PRISTIQ [Concomitant]
     Indication: BIPOLAR DISORDER
     Dosage: 100 MG, 1X/DAY
     Route: 048

REACTIONS (3)
  - BACK PAIN [None]
  - FIBROMYALGIA [None]
  - DRUG INTOLERANCE [None]
